FAERS Safety Report 18904304 (Version 2)
Quarter: 2021Q1

REPORT INFORMATION
  Report Type: Report from Study
  Country: BR (occurrence: BR)
  Receive Date: 20210217
  Receipt Date: 20210305
  Transmission Date: 20210420
  Serious: Yes (Other)
  Sender: FDA-Public Use
  Company Number: NVSC2021BR034330

PATIENT
  Sex: Female
  Weight: 63 kg

DRUGS (3)
  1. FULVESTRANT. [Concomitant]
     Active Substance: FULVESTRANT
     Indication: BREAST CANCER METASTATIC
     Dosage: UNK, QMO (STARTED BEFORE KISQALI)
     Route: 065
  2. LETROZOLE. [Suspect]
     Active Substance: LETROZOLE
     Indication: BREAST CANCER METASTATIC
     Dosage: UNK UNK, QD STARTED (AROUND MAY OR JUN 2021)
     Route: 048
     Dates: end: 202011
  3. ADDERA D3 [Concomitant]
     Active Substance: CHOLECALCIFEROL
     Indication: VITAMIN SUPPLEMENTATION
     Dosage: 1 DF, QD (2 TABLETS Q WEEK)
     Route: 048
     Dates: start: 2018

REACTIONS (7)
  - Metastases to bone [Unknown]
  - Drug ineffective [Recovered/Resolved]
  - Asthenia [Recovering/Resolving]
  - Disease recurrence [Recovering/Resolving]
  - Nausea [Recovered/Resolved]
  - Alopecia [Recovering/Resolving]
  - Metastases to liver [Unknown]

NARRATIVE: CASE EVENT DATE: 2020
